FAERS Safety Report 25399554 (Version 1)
Quarter: 2025Q2

REPORT INFORMATION
  Report Type: Spontaneous
  Country: US (occurrence: US)
  Receive Date: 20250605
  Receipt Date: 20250605
  Transmission Date: 20250716
  Serious: Yes (Other)
  Sender: UCB
  Company Number: US-UCBSA-2025032426

PATIENT
  Age: 25 Year
  Sex: Male

DRUGS (2)
  1. BRIVIACT [Interacting]
     Active Substance: BRIVARACETAM
     Indication: Product used for unknown indication
  2. PREDNISONE [Interacting]
     Active Substance: PREDNISONE
     Indication: Product used for unknown indication

REACTIONS (2)
  - Arthritis reactive [Unknown]
  - Drug interaction [Unknown]
